FAERS Safety Report 4883267-5 (Version None)
Quarter: 2006Q1

REPORT INFORMATION
  Report Type: 
  Country: None (occurrence: None)
  Receive Date: 20060112
  Receipt Date: 20060104
  Transmission Date: 20060701
  Serious: Yes (Death, Hospitalization)
  Sender: FDA-Public Use
  Company Number: 2006RR-01443

PATIENT
  Age: 88 Year
  Sex: Female

DRUGS (17)
  1. TRIMETHOPRIM [Suspect]
     Dosage: 200 MG, BID,
     Dates: start: 20051105, end: 20051113
  2. CEFRADINE CAPSULE 500MG (CEFRADINE) [Suspect]
     Dosage: 1 G, QID, INTRAVENOUS
     Route: 042
     Dates: start: 20051106, end: 20051108
  3. CIPROFLOXACIN 500 MG FILM-COATED TABLETS (CIPROFLOXACIN) TABLET, 500MG [Suspect]
     Indication: PSEUDOMONAS INFECTION
     Dosage: 500 MG, BID, INTRAVENOUS
     Route: 042
     Dates: start: 20051112, end: 20051115
  4. CO-AMOXICLAV SUSPENSION 125MG/31MG (CLAVULANIC ACID 31 MG, AMOXICILLIN [Suspect]
     Indication: LOWER RESPIRATORY TRACT INFECTION
     Dosage: 1.2 G, TID, INTRAVENOUS
     Route: 042
     Dates: start: 20051115, end: 20051118
  5. GENTAMICIN [Suspect]
     Indication: PSEUDOMONAS INFECTION
     Dosage: 240 MG, EVERY 36 HOURS,
     Dates: start: 20051115, end: 20051118
  6. CLEXANE [Concomitant]
  7. CO-CODAMOL [Concomitant]
  8. CO-CODAMOL [Concomitant]
  9. ADCAL [Concomitant]
  10. ALENDRONIC ACID [Concomitant]
  11. CYCLIZINE [Concomitant]
  12. FERROUS SULPHATE (FERROUS SULFATE) [Concomitant]
  13. DIGOXIN [Concomitant]
  14. MOVICOL [Concomitant]
  15. MOVICOL [Concomitant]
  16. MOVICOL [Concomitant]
  17. MOVICOL [Concomitant]

REACTIONS (5)
  - ABDOMINAL DISTENSION [None]
  - CLOSTRIDIUM COLITIS [None]
  - DIARRHOEA [None]
  - LOWER RESPIRATORY TRACT INFECTION [None]
  - RENAL IMPAIRMENT [None]
